FAERS Safety Report 17040525 (Version 2)
Quarter: 2019Q4

REPORT INFORMATION
  Report Type: Spontaneous
  Country: JP (occurrence: JP)
  Receive Date: 20191117
  Receipt Date: 20191123
  Transmission Date: 20200122
  Serious: Yes (Other)
  Sender: FDA-Public Use
  Company Number: JP-ROCHE-2474054

PATIENT
  Age: 73 Year
  Sex: Female

DRUGS (2)
  1. LAPATINIB [Suspect]
     Active Substance: LAPATINIB
     Indication: GALLBLADDER CANCER RECURRENT
     Route: 065
  2. CAPECITABINE. [Suspect]
     Active Substance: CAPECITABINE
     Indication: GALLBLADDER CANCER RECURRENT
     Dosage: ON DAYS 1 THROUGH 14 OF A 21 D CYCLE
     Route: 048

REACTIONS (1)
  - Mucosal inflammation [Recovered/Resolved]
